FAERS Safety Report 4724429-7 (Version None)
Quarter: 2005Q3

REPORT INFORMATION
  Report Type: 
  Country: None (occurrence: None)
  Receive Date: 20050721
  Receipt Date: 20050630
  Transmission Date: 20060218
  Serious: Yes (Death, Life-Threatening, Hospitalization, Other)
  Sender: FDA-Public Use
  Company Number: EWC050543864

PATIENT
  Age: 81 Year
  Sex: Female
  Weight: 60 kg

DRUGS (5)
  1. TERIPARATIDE [Suspect]
     Indication: OSTEOPOROTIC FRACTURE
     Dosage: 20 UG/1 DAY
     Dates: start: 20041001, end: 20050207
  2. LEVOTHYROXINE SODIUM [Concomitant]
  3. CORDARONE [Concomitant]
  4. MARCUMAR [Concomitant]
  5. SIFROL (PRAMIPEXOLE DIHYDROCHLORIDE) [Concomitant]

REACTIONS (10)
  - ABDOMINAL PAIN [None]
  - ANOREXIA [None]
  - ATRIAL FIBRILLATION [None]
  - CARDIAC DISORDER [None]
  - CHOLELITHIASIS [None]
  - GENERAL PHYSICAL CONDITION ABNORMAL [None]
  - HEPATIC ENZYME INCREASED [None]
  - PANCREATITIS ACUTE [None]
  - SHOCK [None]
  - WEIGHT DECREASED [None]
